FAERS Safety Report 4705724-4 (Version None)
Quarter: 2005Q3

REPORT INFORMATION
  Report Type: 
  Country: None (occurrence: None)
  Receive Date: 20050701
  Receipt Date: 20050627
  Transmission Date: 20060218
  Serious: Yes (Life-Threatening, Hospitalization)
  Sender: FDA-Public Use
  Company Number: DE-MERCK-0506DEU00241

PATIENT
  Age: 13 Year
  Sex: Female

DRUGS (5)
  1. SINGULAIR [Suspect]
     Indication: ASTHMA
     Route: 048
     Dates: start: 20050501, end: 20050621
  2. SINGULAIR [Suspect]
     Indication: BRONCHITIS
     Route: 048
     Dates: start: 20050501, end: 20050621
  3. TOPIRAMATE [Concomitant]
     Route: 065
  4. CLONAZEPAM [Concomitant]
     Route: 065
  5. VALPROATE SODIUM [Concomitant]
     Indication: CONVULSION
     Route: 065

REACTIONS (8)
  - ARTHRALGIA [None]
  - BOWEL SOUNDS ABNORMAL [None]
  - CLOSTRIDIUM COLITIS [None]
  - ERUCTATION [None]
  - ILEUS [None]
  - MONARTHRITIS [None]
  - PNEUMONIA [None]
  - RETCHING [None]
